FAERS Safety Report 20782521 (Version 1)
Quarter: 2022Q2

REPORT INFORMATION
  Report Type: Spontaneous
  Country: US (occurrence: US)
  Receive Date: 20220504
  Receipt Date: 20220504
  Transmission Date: 20220720
  Serious: No
  Sender: FDA-Public Use
  Company Number: US-BAYER-2022A061783

PATIENT
  Sex: Female

DRUGS (16)
  1. BETASERON [Suspect]
     Active Substance: INTERFERON BETA-1B
     Indication: Multiple sclerosis
     Dosage: 0.25 MG, QOD
     Route: 058
  2. RANITIDINE A [Concomitant]
     Dosage: 75 MG
  3. BACLOFEN [Concomitant]
     Active Substance: BACLOFEN
     Dosage: 20 MG
  4. CARISOPRODOL [Concomitant]
     Active Substance: CARISOPRODOL
     Dosage: 350 MG
  5. CEFDINIR [Concomitant]
     Active Substance: CEFDINIR
     Dosage: 300 MG
  6. CLONAZEPAM [Concomitant]
     Active Substance: CLONAZEPAM
     Dosage: 2 MG
  7. DIAZEPAM [Concomitant]
     Active Substance: DIAZEPAM
     Dosage: 10 MG
  8. DRONABINOL [Concomitant]
     Active Substance: DRONABINOL
     Dosage: 10 MG
  9. DULOXETINE [Concomitant]
     Active Substance: DULOXETINE
     Dosage: 60 MG
  10. LAMOTRIGINE [Concomitant]
     Active Substance: LAMOTRIGINE
     Dosage: 100 MG
  11. METHENAMINE [METHENAMINE HIPPURATE] [Concomitant]
     Dosage: 1 G
  12. MODAFINIL [Concomitant]
     Active Substance: MODAFINIL
     Dosage: 200 MG
  13. MORPHINE SULFATE [Concomitant]
     Active Substance: MORPHINE SULFATE
     Dosage: 15 MG
  14. MORPHINE SULFATE [Concomitant]
     Active Substance: MORPHINE SULFATE
     Dosage: 60 MG
  15. TOPIRAMATE [Concomitant]
     Active Substance: TOPIRAMATE
     Dosage: 100 MG
  16. VENTOLIN HFA [Concomitant]
     Active Substance: ALBUTEROL SULFATE
     Dosage: UNK

REACTIONS (2)
  - Gastric disorder [None]
  - Product dose omission issue [None]
